FAERS Safety Report 24981038 (Version 1)
Quarter: 2025Q1

REPORT INFORMATION
  Report Type: Report from Study
  Country: US (occurrence: None)
  Receive Date: 20250218
  Receipt Date: 20250218
  Transmission Date: 20250408
  Serious: Yes (Other)
  Sender: ALEXION PHARMACEUTICALS
  Company Number: US-AstraZeneca-2014SE85781

PATIENT
  Age: 72 Year
  Weight: 90.718 kg

DRUGS (10)
  1. NEXIUM [Suspect]
     Active Substance: ESOMEPRAZOLE MAGNESIUM
  2. ATENOLOL [Suspect]
     Active Substance: ATENOLOL
     Indication: Cardiac disorder
  3. CRESTOR [Suspect]
     Active Substance: ROSUVASTATIN CALCIUM
     Indication: Blood cholesterol
  4. CRESTOR [Suspect]
     Active Substance: ROSUVASTATIN CALCIUM
     Dosage: 20 MILLIGRAM, QD
  5. NEXIUM [Suspect]
     Active Substance: ESOMEPRAZOLE MAGNESIUM
     Indication: Gastrooesophageal reflux disease
  6. ONGLYZA [Suspect]
     Active Substance: SAXAGLIPTIN HYDROCHLORIDE
     Indication: Diabetes mellitus
  7. LOSARTAN POTASSIUM [Concomitant]
     Active Substance: LOSARTAN POTASSIUM
     Indication: Cardiac disorder
  8. GLIMEPIRIDE [Concomitant]
     Active Substance: GLIMEPIRIDE
     Indication: Diabetes mellitus
  9. ASPIRIN [Concomitant]
     Active Substance: ASPIRIN
  10. VITAMIN D [Concomitant]
     Active Substance: VITAMIN D NOS

REACTIONS (15)
  - Aneurysm [Recovered/Resolved]
  - Renal artery occlusion [Recovered/Resolved]
  - Regurgitation [Not Recovered/Not Resolved]
  - Vomiting [Not Recovered/Not Resolved]
  - Dyspepsia [Not Recovered/Not Resolved]
  - Abdominal discomfort [Not Recovered/Not Resolved]
  - Salmonellosis [Unknown]
  - Helicobacter infection [Unknown]
  - Diabetes mellitus [Not Recovered/Not Resolved]
  - Neuropathy peripheral [Not Recovered/Not Resolved]
  - Memory impairment [Unknown]
  - Hypoacusis [Unknown]
  - Drug ineffective [Unknown]
  - Product dose omission issue [Not Recovered/Not Resolved]
  - Intentional product misuse [Unknown]
